FAERS Safety Report 5911757-2 (Version None)
Quarter: 2008Q4

REPORT INFORMATION
  Report Type: 
  Country: None (occurrence: None)
  Receive Date: 20081008
  Receipt Date: 20080811
  Transmission Date: 20090506
  Serious: No
  Sender: FDA-Public Use
  Company Number: US-BAYER-200831797NA

PATIENT
  Age: 61 Year
  Sex: Female
  Weight: 95 kg

DRUGS (9)
  1. ULTRAVIST 370 [Suspect]
     Indication: COMPUTERISED TOMOGRAM ABDOMEN
     Dosage: TOTAL DAILY DOSE: 120  ML  UNIT DOSE: 500 ML
     Route: 042
     Dates: start: 20080811, end: 20080811
  2. COZAAR [Concomitant]
  3. METFORMIN HCL [Concomitant]
  4. NEXIUM [Concomitant]
  5. DETROL [Concomitant]
  6. ALLOPURINOL [Concomitant]
  7. VERAPAMIL [Concomitant]
  8. ELAVIL [Concomitant]
  9. BYETTA [Concomitant]

REACTIONS (1)
  - PRURITUS [None]
